FAERS Safety Report 10029627 (Version 1)
Quarter: 2014Q1

REPORT INFORMATION
  Report Type: Spontaneous
  Country: US (occurrence: None)
  Receive Date: 20140320
  Receipt Date: 20140320
  Transmission Date: 20141002
  Serious: Yes (Life-Threatening, Hospitalization)
  Sender: FDA-Public Use
  Company Number: None

PATIENT
  Age: 70 Year
  Sex: Female
  Weight: 55 kg

DRUGS (2)
  1. FERRLECIT [Suspect]
     Indication: IRON DEFICIENCY ANAEMIA
     Dosage: Q TUESDAY, INTRAVENOUS PUSH
     Route: 042
     Dates: start: 20130305, end: 20130409
  2. FERRLECIT [Suspect]
     Indication: RENAL FAILURE
     Dosage: Q TUESDAY, INTRAVENOUS PUSH
     Route: 042
     Dates: start: 20130305, end: 20130409

REACTIONS (2)
  - Dyspnoea [None]
  - Blood pressure increased [None]
